FAERS Safety Report 8582925-9 (Version None)
Quarter: 2012Q3

REPORT INFORMATION
  Report Type: 
  Country: None (occurrence: None)
  Receive Date: 20120727
  Receipt Date: 20120718
  Transmission Date: 20120928
  Serious: Yes (Other)
  Sender: FDA-Public Use
  Company Number: AUR-APL-2012-03038

PATIENT
  Age: 90 Year
  Sex: Female
  Weight: 78 kg

DRUGS (9)
  1. ASPIRIN [Concomitant]
  2. LEVOTHYROXINE SODIUM [Concomitant]
  3. SIMVASTATIN [Concomitant]
  4. BISOPROLOL FUMARATE [Concomitant]
  5. ISOSORBIDE MONONITRATE [Concomitant]
  6. FUROSEMIDE [Concomitant]
  7. RAMIPRIL [Suspect]
     Indication: PRODUCT USED FOR UNKNOWN INDICATION
     Dosage: UNKNOWN
     Dates: start: 20120326
  8. LANSOPRAZOLE [Concomitant]
  9. CLOPIDOGREL [Concomitant]

REACTIONS (2)
  - EXERCISE TEST ABNORMAL [None]
  - JOINT SWELLING [None]
